FAERS Safety Report 6295514-6 (Version None)
Quarter: 2009Q3

REPORT INFORMATION
  Report Type: 
  Country: None (occurrence: None)
  Receive Date: 20090731
  Receipt Date: 20090716
  Transmission Date: 20100115
  Serious: Yes (Hospitalization)
  Sender: FDA-Public Use
  Company Number: ADE2009-0672

PATIENT
  Age: 49 Year
  Sex: Female
  Weight: 89 kg

DRUGS (11)
  1. ONDANSETRON [Suspect]
     Dosage: 4MG - X1
  2. PAROXETINE [Suspect]
     Indication: DEPRESSION
     Dosage: 30MG - DAILY
  3. METHYLENE BLUE [Suspect]
     Indication: PARATHYROIDECTOMY
  4. ATRACURIUM [Concomitant]
  5. DICLOFENAC [Concomitant]
  6. ENFLURANE INHALATION [Concomitant]
  7. INDOMETHACIN [Concomitant]
  8. MORPHINE [Concomitant]
  9. PROPOFOL [Concomitant]
  10. OXYGEN INHALATION [Concomitant]
  11. NITROUS OXIDE INHALATION [Concomitant]

REACTIONS (18)
  - AGITATION [None]
  - ALKALOSIS [None]
  - BLOOD CREATINE PHOSPHOKINASE INCREASED [None]
  - BLOOD PRESSURE INCREASED [None]
  - CONFUSIONAL STATE [None]
  - DELIRIUM [None]
  - DRUG INEFFECTIVE [None]
  - DRUG INTERACTION [None]
  - DRUG TOXICITY [None]
  - DYSKINESIA [None]
  - EYE ROLLING [None]
  - HEART RATE INCREASED [None]
  - MYDRIASIS [None]
  - OCULOGYRIC CRISIS [None]
  - PCO2 INCREASED [None]
  - PYREXIA [None]
  - SPEECH DISORDER [None]
  - UNRESPONSIVE TO STIMULI [None]
